FAERS Safety Report 8263511-7 (Version None)
Quarter: 2012Q2

REPORT INFORMATION
  Report Type: 
  Country: None (occurrence: None)
  Receive Date: 20120405
  Receipt Date: 20120322
  Transmission Date: 20120825
  Serious: Yes (Life-Threatening, Hospitalization)
  Sender: FDA-Public Use
  Company Number: DE-INCYTE CORPORATION-2012IN000459

PATIENT
  Sex: Female
  Weight: 72 kg

DRUGS (4)
  1. SPIRONOLACTONE [Suspect]
     Indication: DIURETIC THERAPY
     Dosage: UNK
     Dates: end: 20120315
  2. ALLOPURINOL [Concomitant]
     Dosage: UNK
     Dates: end: 20120315
  3. RAMIPRIL [Concomitant]
     Dosage: UNK
     Dates: end: 20120315
  4. INC424 [Suspect]
     Indication: MYELOFIBROSIS
     Dosage: 15 MG, BID
     Route: 048
     Dates: start: 20120301, end: 20120316

REACTIONS (11)
  - DIARRHOEA [None]
  - THROMBOCYTOPENIA [None]
  - HAEMATOCHEZIA [None]
  - FAECES DISCOLOURED [None]
  - COLITIS ISCHAEMIC [None]
  - KLEBSIELLA INFECTION [None]
  - HAEMOGLOBIN DECREASED [None]
  - WHITE BLOOD CELL COUNT DECREASED [None]
  - GENERAL PHYSICAL HEALTH DETERIORATION [None]
  - RENAL FAILURE [None]
  - DEHYDRATION [None]
